FAERS Safety Report 4690547-5 (Version None)
Quarter: 2005Q2

REPORT INFORMATION
  Report Type: 
  Country: None (occurrence: None)
  Receive Date: 20050614
  Receipt Date: 20050614
  Transmission Date: 20051028
  Serious: Yes (Other)
  Sender: FDA-Public Use
  Company Number: None

PATIENT
  Sex: Female
  Weight: 43.0917 kg

DRUGS (1)
  1. AMITRIPTYLINE    25MG     MYLA [Suspect]
     Indication: MIGRAINE
     Dosage: 25MG   ONCE A DAY   ORAL
     Route: 048
     Dates: start: 20050524, end: 20050601

REACTIONS (4)
  - BURNING SENSATION [None]
  - NEUROPATHY PERIPHERAL [None]
  - PAIN [None]
  - PARAESTHESIA [None]
